FAERS Safety Report 6187580-3 (Version None)
Quarter: 2009Q2

REPORT INFORMATION
  Report Type: 
  Country: None (occurrence: None)
  Receive Date: 20090508
  Receipt Date: 20090423
  Transmission Date: 20091009
  Serious: Yes (Hospitalization, Other)
  Sender: FDA-Public Use
  Company Number: VAL_00260_2009

PATIENT
  Age: 26 Year
  Sex: Female
  Weight: 53 kg

DRUGS (1)
  1. CARBAMAZEPINE [Suspect]
     Indication: COMPLEX PARTIAL SEIZURES
     Dosage: (400 MG BID)

REACTIONS (10)
  - BLOOD CORTISOL INCREASED [None]
  - CORTISOL FREE URINE INCREASED [None]
  - CUSHING'S SYNDROME [None]
  - DEXAMETHASONE SUPPRESSION TEST POSITIVE [None]
  - FALSE POSITIVE LABORATORY RESULT [None]
  - HIRSUTISM [None]
  - POLYDIPSIA PSYCHOGENIC [None]
  - POLYURIA [None]
  - SLEEP DISORDER [None]
  - THIRST [None]
